FAERS Safety Report 8455655-1 (Version None)
Quarter: 2012Q2

REPORT INFORMATION
  Report Type: 
  Country: None (occurrence: None)
  Receive Date: 20120613
  Receipt Date: 20120530
  Transmission Date: 20120825
  Serious: Yes (Other)
  Sender: FDA-Public Use
  Company Number: DSA_57778_2012

PATIENT

DRUGS (4)
  1. FLUOROURACIL [Suspect]
     Indication: COLORECTAL CANCER METASTATIC
     Dosage: (400 MG/M2 INTRAVENOUS (NOT OTHERWISE SPECIFIED)
     Route: 042
  2. FLUOROURACIL [Suspect]
     Dosage: (600 MG/M2 INTRAVENOUS DRIP)
     Route: 041
  3. LEUCOVORIN CALCIUM [Suspect]
     Indication: COLORECTAL CANCER METASTATIC
     Dosage: (200 MG/M2 INTRAVENOUS DRIP)
     Route: 041
  4. OXALIPLATIN [Suspect]
     Indication: COLORECTAL CANCER METASTATIC
     Dosage: (85 MG/M2; EVERY OTHER WEEK INTRAVENOUS DRIP)
     Route: 041

REACTIONS (1)
  - BONE MARROW FAILURE [None]
